FAERS Safety Report 5222377-X (Version None)
Quarter: 2007Q1

REPORT INFORMATION
  Report Type: 
  Country: None (occurrence: None)
  Receive Date: 20070129
  Receipt Date: 20070118
  Transmission Date: 20070707
  Serious: Yes (Other)
  Sender: FDA-Public Use
  Company Number: 200615203EU

PATIENT
  Sex: Male

DRUGS (1)
  1. NICOTINE [Suspect]
     Indication: DRUG USE FOR UNKNOWN INDICATION
     Route: 002
     Dates: start: 20040101

REACTIONS (2)
  - DRUG DEPENDENCE [None]
  - INCORRECT DRUG ADMINISTRATION DURATION [None]
